FAERS Safety Report 23247648 (Version 1)
Quarter: 2023Q4

REPORT INFORMATION
  Report Type: Spontaneous
  Country: IE (occurrence: IE)
  Receive Date: 20231130
  Receipt Date: 20231130
  Transmission Date: 20240110
  Serious: Yes (Life-Threatening, Hospitalization, Other)
  Sender: FDA-Public Use
  Company Number: IE-MYLANLABS-2023M1108545

PATIENT
  Age: 28 Year
  Sex: Male

DRUGS (1)
  1. CLOZARIL [Suspect]
     Active Substance: CLOZAPINE
     Indication: Schizophrenia
     Dosage: 475 MILLIGRAM
     Route: 048
     Dates: start: 20230818, end: 20231003

REACTIONS (8)
  - Agranulocytosis [Recovered/Resolved]
  - Mental impairment [Unknown]
  - Haemodynamic instability [Unknown]
  - C-reactive protein increased [Unknown]
  - White blood cell count decreased [Recovered/Resolved]
  - Neutrophil count decreased [Recovered/Resolved]
  - Neutropenic sepsis [Recovered/Resolved]
  - Renal impairment [Unknown]

NARRATIVE: CASE EVENT DATE: 20231001
